FAERS Safety Report 24171727 (Version 1)
Quarter: 2024Q3

REPORT INFORMATION
  Report Type: Report from Study
  Country: US (occurrence: US)
  Receive Date: 20240805
  Receipt Date: 20240805
  Transmission Date: 20241017
  Serious: Yes (Other)
  Sender: ABBVIE
  Company Number: US-ABBVIE-5707753

PATIENT
  Age: 60 Year
  Sex: Female
  Weight: 113 kg

DRUGS (2)
  1. RINVOQ [Suspect]
     Active Substance: UPADACITINIB
     Indication: Rheumatoid arthritis
     Route: 048
     Dates: start: 20200110
  2. LEVOTHYROXINE [Concomitant]
     Active Substance: LEVOTHYROXINE\LEVOTHYROXINE SODIUM
     Indication: Product used for unknown indication

REACTIONS (7)
  - Lower limb fracture [Not Recovered/Not Resolved]
  - Cartilage injury [Recovering/Resolving]
  - Foot fracture [Not Recovered/Not Resolved]
  - Osteochondral fracture [Recovering/Resolving]
  - Ligament sprain [Unknown]
  - Multiple fractures [Not Recovered/Not Resolved]
  - Pain [Unknown]

NARRATIVE: CASE EVENT DATE: 20211101
